FAERS Safety Report 23561920 (Version 1)
Quarter: 2024Q1

REPORT INFORMATION
  Report Type: Spontaneous
  Country: ES (occurrence: ES)
  Receive Date: 20240225
  Receipt Date: 20240225
  Transmission Date: 20240409
  Serious: Yes (Other)
  Sender: FDA-Public Use
  Company Number: ES-009507513-2402ESP006706

PATIENT
  Age: 72 Year
  Sex: Female

DRUGS (2)
  1. SIVEXTRO [Suspect]
     Active Substance: TEDIZOLID PHOSPHATE
     Indication: Bacteraemia
     Dosage: 200 MILLIGRAM, Q24H
     Dates: start: 20240112, end: 20240121
  2. MEROPENEM [Suspect]
     Active Substance: MEROPENEM
     Indication: Bacteraemia
     Dosage: 200 MILLIGRAM, Q8H
     Dates: start: 20240112, end: 20240122

REACTIONS (1)
  - Eosinophilia [Unknown]

NARRATIVE: CASE EVENT DATE: 20240121
